FAERS Safety Report 20924818 (Version 3)
Quarter: 2022Q4

REPORT INFORMATION
  Report Type: Spontaneous
  Country: US (occurrence: US)
  Receive Date: 20220607
  Receipt Date: 20221116
  Transmission Date: 20230112
  Serious: No
  Sender: FDA-Public Use
  Company Number: US-PHARMAESSENTIA CORPORATION-US-2022-PEC-000556

PATIENT

DRUGS (2)
  1. BESREMI [Suspect]
     Active Substance: ROPEGINTERFERON ALFA-2B-NJFT
     Indication: Myeloproliferative neoplasm
     Dosage: 100 MICROGRAM, EVERY 14 DAYS
     Route: 058
     Dates: start: 202203
  2. BESREMI [Suspect]
     Active Substance: ROPEGINTERFERON ALFA-2B-NJFT
     Dosage: UNK
     Route: 065

REACTIONS (4)
  - COVID-19 [Unknown]
  - Inappropriate schedule of product administration [Unknown]
  - Product dose omission issue [Unknown]
  - Fatigue [Unknown]

NARRATIVE: CASE EVENT DATE: 20220301
